FAERS Safety Report 26005774 (Version 1)
Quarter: 2025Q4

REPORT INFORMATION
  Report Type: Spontaneous
  Country: EU (occurrence: None)
  Receive Date: 20251106
  Receipt Date: 20251106
  Transmission Date: 20260117
  Serious: Yes (Hospitalization, Other)
  Sender: ORION
  Company Number: None

PATIENT
  Age: 43 Year
  Sex: Female

DRUGS (9)
  1. METHOTREXATE [Suspect]
     Active Substance: METHOTREXATE
     Indication: Crohn^s disease
  2. IMURAN [Suspect]
     Active Substance: AZATHIOPRINE
     Indication: Crohn^s disease
     Dosage: STRENGTH: 50 MG
  3. PREDNISONE [Suspect]
     Active Substance: PREDNISONE
     Indication: Crohn^s disease
  4. REMICADE [Suspect]
     Active Substance: INFLIXIMAB
     Indication: Product used for unknown indication
     Dates: start: 201808, end: 202212
  5. USTEKINUMAB [Suspect]
     Active Substance: USTEKINUMAB
     Indication: Product used for unknown indication
     Dates: start: 202312
  6. USTEKINUMAB [Suspect]
     Active Substance: USTEKINUMAB
  7. CONCOR COMBI [Concomitant]
     Dosage: 5/5
  8. OMEPRAZOLE [Concomitant]
     Active Substance: OMEPRAZOLE
  9. SALOFALK [Concomitant]
     Dosage: 500 MG (3 X 2 TBL A 500 MG)

REACTIONS (16)
  - Angioimmunoblastic T-cell lymphoma [Unknown]
  - Pneumonia streptococcal [Unknown]
  - Lupus-like syndrome [Unknown]
  - Crohn^s disease [Unknown]
  - Leukopenia [Unknown]
  - Drug ineffective for unapproved indication [Unknown]
  - Product use in unapproved indication [Unknown]
  - Medication error [Unknown]
  - Arthralgia [Unknown]
  - Myalgia [Unknown]
  - Arthropathy [Unknown]
  - Dyspepsia [Unknown]
  - Hypertension [Unknown]
  - Anal fistula [Unknown]
  - Cough [Unknown]
  - Supraventricular tachycardia [Unknown]

NARRATIVE: CASE EVENT DATE: 20210201
